FAERS Safety Report 18549417 (Version 4)
Quarter: 2022Q3

REPORT INFORMATION
  Report Type: Spontaneous
  Country: JP (occurrence: JP)
  Receive Date: 20201126
  Receipt Date: 20220713
  Transmission Date: 20221026
  Serious: Yes (Other)
  Sender: FDA-Public Use
  Company Number: JP-GSKNCCC-CASE-01088558_AE-37115

PATIENT

DRUGS (5)
  1. LAMICTAL [Suspect]
     Active Substance: LAMOTRIGINE
     Indication: Bipolar disorder relapse prophylaxis
     Dosage: 100 MG, 1D
     Route: 048
     Dates: end: 20201119
  2. LAMICTAL [Suspect]
     Active Substance: LAMOTRIGINE
     Indication: Bipolar II disorder
     Dosage: 75 MG, QD
     Route: 048
     Dates: start: 20201120, end: 20201203
  3. LAMICTAL [Suspect]
     Active Substance: LAMOTRIGINE
     Dosage: 100 MG, QD
     Route: 048
     Dates: start: 20201204, end: 20201210
  4. LAMICTAL [Suspect]
     Active Substance: LAMOTRIGINE
     Dosage: 125 MG, QD
     Route: 048
     Dates: start: 20201211
  5. MARVELON [Concomitant]
     Active Substance: DESOGESTREL\ETHINYL ESTRADIOL
     Indication: Acne
     Dosage: UNK
     Route: 048
     Dates: start: 20201113, end: 20201120

REACTIONS (4)
  - Bipolar II disorder [Recovering/Resolving]
  - Condition aggravated [Recovering/Resolving]
  - Depressed mood [Recovering/Resolving]
  - Acne [Unknown]

NARRATIVE: CASE EVENT DATE: 20201101
